FAERS Safety Report 10374715 (Version 1)
Quarter: 2014Q3

REPORT INFORMATION
  Report Type: Report from Study
  Country: US (occurrence: US)
  Receive Date: 20140811
  Receipt Date: 20140811
  Transmission Date: 20150326
  Serious: Yes (Hospitalization)
  Sender: FDA-Public Use
  Company Number: US-SA-2014SA104211

PATIENT
  Age: 48 Year
  Sex: Male

DRUGS (1)
  1. LANTUS [Suspect]
     Active Substance: INSULIN GLARGINE
     Indication: DIABETES MELLITUS
     Dosage: FORM: VIAL DOSE:25 UNIT(S)
     Route: 065
     Dates: start: 2013

REACTIONS (3)
  - Limb discomfort [Unknown]
  - Localised infection [Unknown]
  - Dysstasia [Unknown]

NARRATIVE: CASE EVENT DATE: 201403
